FAERS Safety Report 7420920-3 (Version None)
Quarter: 2011Q2

REPORT INFORMATION
  Report Type: 
  Country: None (occurrence: None)
  Receive Date: 20110418
  Receipt Date: 20110411
  Transmission Date: 20111010
  Serious: Yes (Death)
  Sender: FDA-Public Use
  Company Number: B0711991A

PATIENT
  Sex: Female

DRUGS (3)
  1. ANALGESIC [Concomitant]
     Route: 065
  2. TYSABRI [Suspect]
     Indication: MULTIPLE SCLEROSIS
     Dosage: 300MG MONTHLY
     Route: 042
     Dates: start: 20110101, end: 20110324
  3. LAMICTAL [Suspect]
     Indication: PAIN
     Dosage: 50MG TWICE PER DAY
     Route: 048
     Dates: start: 20110101, end: 20110329

REACTIONS (4)
  - MALAISE [None]
  - FATIGUE [None]
  - SUDDEN DEATH [None]
  - OFF LABEL USE [None]
